FAERS Safety Report 5908838-6 (Version None)
Quarter: 2008Q4

REPORT INFORMATION
  Report Type: 
  Country: None (occurrence: None)
  Receive Date: 20081006
  Receipt Date: 20080929
  Transmission Date: 20090506
  Serious: Yes (Other)
  Sender: FDA-Public Use
  Company Number: US-ASTRAZENECA-2008UW20627

PATIENT

DRUGS (2)
  1. SEROQUEL [Suspect]
     Route: 048
  2. ANTIDEPRESSANT [Concomitant]

REACTIONS (2)
  - NIGHTMARE [None]
  - SOMNAMBULISM [None]
